FAERS Safety Report 23764988 (Version 1)
Quarter: 2024Q2

REPORT INFORMATION
  Report Type: Spontaneous
  Country: US (occurrence: US)
  Receive Date: 20240420
  Receipt Date: 20240420
  Transmission Date: 20240716
  Serious: No
  Sender: FDA-Public Use
  Company Number: US-SA-SAC20240415000363

PATIENT
  Sex: Male

DRUGS (7)
  1. DUPIXENT [Suspect]
     Active Substance: DUPILUMAB
     Indication: Dermatitis atopic
     Dosage: 300 MG, QOW
     Route: 058
  2. ASPIRIN [Concomitant]
     Active Substance: ASPIRIN
  3. IRON [Concomitant]
     Active Substance: IRON
  4. PREDNISONE [Concomitant]
     Active Substance: PREDNISONE
  5. SIMVASTATIN [Concomitant]
     Active Substance: SIMVASTATIN
  6. VERAPAMIL [Concomitant]
     Active Substance: VERAPAMIL HYDROCHLORIDE
  7. VITAMIN D NOS [Concomitant]
     Active Substance: VITAMIN D NOS

REACTIONS (4)
  - Skin swelling [Unknown]
  - Skin discolouration [Unknown]
  - Pain of skin [Unknown]
  - Incorrect route of product administration [Unknown]
